FAERS Safety Report 10751623 (Version 1)
Quarter: 2015Q1

REPORT INFORMATION
  Report Type: Spontaneous
  Country: FR (occurrence: FR)
  Receive Date: 20150130
  Receipt Date: 20150130
  Transmission Date: 20150721
  Serious: Yes (Hospitalization, Other)
  Sender: FDA-Public Use
  Company Number: FR-PFIZER INC-2015038164

PATIENT
  Age: 65 Year
  Sex: Female

DRUGS (11)
  1. MICARDIS [Suspect]
     Active Substance: TELMISARTAN
     Indication: HYPERTENSION
     Dosage: 80 MG, 1X/DAY
     Route: 048
  2. BOSULIF [Suspect]
     Active Substance: BOSUTINIB MONOHYDRATE
     Indication: CHRONIC MYELOID LEUKAEMIA
     Dosage: 500 MG, 1X/DAY
     Route: 048
     Dates: start: 201406
  3. TEMERIT [Suspect]
     Active Substance: NEBIVOLOL
     Indication: CARDIAC FAILURE
     Dosage: 2.5 MG, 1X/DAY
     Route: 048
  4. PREVISCAN [Suspect]
     Active Substance: FLUINDIONE
     Indication: DEEP VEIN THROMBOSIS
     Dosage: 20 MG, 1X/DAY
     Route: 048
  5. EZETROL [Suspect]
     Active Substance: EZETIMIBE
     Indication: DYSLIPIDAEMIA
     Dosage: 10 MG, 1X/DAY
     Route: 048
  6. LEXOMIL [Suspect]
     Active Substance: BROMAZEPAM
     Dosage: 12 MG, 1X/DAY
     Route: 048
  7. ALDACTONE [Suspect]
     Active Substance: SPIRONOLACTONE
     Dosage: 50 MG, 1X/DAY
     Route: 048
  8. INEXIUM /01479302/ [Suspect]
     Active Substance: ESOMEPRAZOLE MAGNESIUM
     Dosage: 20 MG, 1X/DAY
     Route: 048
  9. BETNESOL [Suspect]
     Active Substance: BETAMETHASONE
     Dosage: 0.50 MG, 1X/DAY
     Route: 048
  10. IXPRIM [Suspect]
     Active Substance: ACETAMINOPHEN\TRAMADOL HYDROCHLORIDE
     Dosage: UNK UNK, AS NEEDED
     Route: 048
  11. PROZAC [Suspect]
     Active Substance: FLUOXETINE HYDROCHLORIDE
     Dosage: 10 MG, 1X/DAY
     Route: 048

REACTIONS (5)
  - Lymphangiectasia [Unknown]
  - Angiodermatitis [Unknown]
  - Skin ulcer [Not Recovered/Not Resolved]
  - Skin necrosis [Unknown]
  - Livedo reticularis [Not Recovered/Not Resolved]

NARRATIVE: CASE EVENT DATE: 201411
